FAERS Safety Report 17371970 (Version 1)
Quarter: 2020Q1

REPORT INFORMATION
  Report Type: Spontaneous
  Country: CN (occurrence: CN)
  Receive Date: 20200205
  Receipt Date: 20200205
  Transmission Date: 20200409
  Serious: Yes (Hospitalization)
  Sender: FDA-Public Use
  Company Number: CN-ANIPHARMA-2020-CN-000029

PATIENT
  Age: 60 Year
  Sex: Female

DRUGS (2)
  1. FLUCONAZOLE (NON-SPECIFIC) [Suspect]
     Active Substance: FLUCONAZOLE
     Indication: PNEUMONIA CRYPTOCOCCAL
     Dosage: 400 MG DAILY
  2. ANASTROZOLE. [Suspect]
     Active Substance: ANASTROZOLE
     Indication: INVASIVE DUCTAL BREAST CARCINOMA
     Dosage: 1 MG DAILY
     Dates: start: 201708

REACTIONS (2)
  - Drug interaction [Recovered/Resolved]
  - Pneumonia cryptococcal [Recovered/Resolved]
